FAERS Safety Report 6125657-9 (Version None)
Quarter: 2009Q1

REPORT INFORMATION
  Report Type: 
  Country: None (occurrence: None)
  Receive Date: 20090320
  Receipt Date: 20090311
  Transmission Date: 20090719
  Serious: Yes (Other)
  Sender: FDA-Public Use
  Company Number: CA-ELI_LILLY_AND_COMPANY-CA200903001271

PATIENT
  Age: 53 Year
  Sex: Male

DRUGS (5)
  1. ZYPREXA [Suspect]
     Indication: SCHIZOPHRENIA
     Dosage: 15 MG, EACH EVENING
     Route: 048
  2. ATENOLOL [Concomitant]
     Dosage: 25 MG, DAILY (1/D)
     Route: 048
  3. EFFEXOR [Concomitant]
     Dosage: 300 MG, DAILY (1/D)
     Route: 048
  4. NAPROXEN [Concomitant]
     Dosage: 500 MG, AS NEEDED
     Route: 048
  5. PREVACID [Concomitant]
     Dosage: 30 MG, DAILY (1/D)
     Route: 048

REACTIONS (3)
  - FEMUR FRACTURE [None]
  - OSTEONECROSIS [None]
  - PAIN [None]
